FAERS Safety Report 7384528-0 (Version None)
Quarter: 2011Q1

REPORT INFORMATION
  Report Type: 
  Country: None (occurrence: None)
  Receive Date: 20110330
  Receipt Date: 20110326
  Transmission Date: 20110831
  Serious: No
  Sender: FDA-Public Use
  Company Number: US-PFIZER INC-2011067483

PATIENT
  Sex: Female
  Weight: 81.633 kg

DRUGS (2)
  1. PRISTIQ [Suspect]
     Indication: DEPRESSION
     Dosage: 50 MG, 1X/DAY
     Route: 048
     Dates: start: 20110321, end: 20110325
  2. ONGLYZA [Concomitant]
     Indication: DIABETES MELLITUS
     Dosage: 5 MG, 1X/DAY
     Route: 048

REACTIONS (5)
  - INFLUENZA LIKE ILLNESS [None]
  - ASTHENIA [None]
  - NAUSEA [None]
  - HYPERHIDROSIS [None]
  - DIARRHOEA [None]
